FAERS Safety Report 14122383 (Version 3)
Quarter: 2019Q1

REPORT INFORMATION
  Report Type: Spontaneous
  Country: US (occurrence: US)
  Receive Date: 20171024
  Receipt Date: 20190303
  Transmission Date: 20190417
  Serious: No
  Sender: FDA-Public Use
  Company Number: US-IMPAX LABORATORIES, INC-2017-IPXL-02857

PATIENT
  Age: 73 Year
  Sex: Female
  Weight: 86 kg

DRUGS (8)
  1. CITALOPRAM [Concomitant]
     Active Substance: CITALOPRAM HYDROBROMIDE
     Indication: DEPRESSION
     Dosage: 20 MG, 1 /DAY, FROM A MONTH
     Route: 048
     Dates: start: 201709
  2. RYTARY [Suspect]
     Active Substance: CARBIDOPA\LEVODOPA
     Indication: PARKINSON^S DISEASE
     Dosage: 48.75/195 MG, UNK
     Route: 048
     Dates: start: 201708, end: 2017
  3. RYTARY [Suspect]
     Active Substance: CARBIDOPA\LEVODOPA
     Dosage: 61.25/245 MG, ONE CAPSULE, FOUR TIMES DAILY
     Route: 048
     Dates: start: 201709
  4. LOBAZAM [Concomitant]
     Indication: HYPERTENSION
     Dosage: 100 MG, 1 /DAY
     Route: 048
     Dates: start: 2007
  5. EXELON [Concomitant]
     Active Substance: RIVASTIGMINE TARTRATE
     Indication: MEMORY IMPAIRMENT
     Dosage: 9.5 MG, EVERY 24 HOURS
     Route: 062
     Dates: start: 201705
  6. RYTARY [Suspect]
     Active Substance: CARBIDOPA\LEVODOPA
     Dosage: 61.25MG/245 MG, 1 CAPSULE, FOUR TIMES DAILY
     Route: 048
  7. OMEPRAZOLE. [Concomitant]
     Active Substance: OMEPRAZOLE
     Indication: ABDOMINAL DISCOMFORT
     Dosage: 40 MG, 1 /DAY
     Route: 048
     Dates: start: 2007
  8. RYTARY [Suspect]
     Active Substance: CARBIDOPA\LEVODOPA
     Dosage: 36.25MG/145MG, 4 PER DAY.
     Route: 048

REACTIONS (10)
  - Crying [Unknown]
  - Drug ineffective [Unknown]
  - Dysstasia [Unknown]
  - Speech disorder [Unknown]
  - Labelled drug-food interaction medication error [Unknown]
  - Gait disturbance [Unknown]
  - Back injury [Recovered/Resolved]
  - Fatigue [Unknown]
  - Dyspnoea [Unknown]
  - Hallucination, visual [Unknown]

NARRATIVE: CASE EVENT DATE: 2017
